FAERS Safety Report 13442084 (Version 1)
Quarter: 2017Q2

REPORT INFORMATION
  Report Type: Spontaneous
  Country: PL (occurrence: PL)
  Receive Date: 20170413
  Receipt Date: 20170413
  Transmission Date: 20170830
  Serious: Yes (Other)
  Sender: FDA-Public Use
  Company Number: PL-ROCHE-1920126

PATIENT
  Sex: Male

DRUGS (1)
  1. PEGASYS [Suspect]
     Active Substance: PEGINTERFERON ALFA-2A
     Indication: HEPATITIS B
     Dosage: THERAPY DURATION 48 WEEKS
     Route: 065

REACTIONS (3)
  - Drug ineffective [Unknown]
  - Alanine aminotransferase increased [Unknown]
  - Viraemia [Unknown]
